FAERS Safety Report 7861376-6 (Version None)
Quarter: 2011Q4

REPORT INFORMATION
  Report Type: 
  Country: None (occurrence: None)
  Receive Date: 20111027
  Receipt Date: 20111019
  Transmission Date: 20120403
  Serious: Yes (Other)
  Sender: FDA-Public Use
  Company Number: JP-AMGEN-JPNSP2011055006

PATIENT
  Age: 61 Year
  Sex: Female

DRUGS (1)
  1. ROMIPLATE [Suspect]
     Indication: IDIOPATHIC THROMBOCYTOPENIC PURPURA
     Dosage: 3 MUG/KG, UNK
     Route: 058
     Dates: start: 20110815, end: 20111019

REACTIONS (2)
  - RENAL IMPAIRMENT [None]
  - HEPATIC FUNCTION ABNORMAL [None]
